FAERS Safety Report 6533063-8 (Version None)
Quarter: 2010Q1

REPORT INFORMATION
  Report Type: 
  Country: None (occurrence: None)
  Receive Date: 20100111
  Receipt Date: 20091230
  Transmission Date: 20100710
  Serious: Yes (Hospitalization)
  Sender: FDA-Public Use
  Company Number: ES-PFIZER INC-2009316146

PATIENT
  Age: 62 Year
  Sex: Male

DRUGS (7)
  1. BLINDED *NO SUBJECT DRUG [Suspect]
     Indication: PROSTATE CANCER
     Dosage: 25 MG, 1X/DAY
     Route: 048
     Dates: start: 20090806, end: 20091228
  2. BLINDED *PLACEBO [Suspect]
     Indication: PROSTATE CANCER
     Dosage: 25 MG, 1X/DAY
     Route: 048
     Dates: start: 20090806, end: 20091228
  3. BLINDED SUNITINIB MALATE [Suspect]
     Indication: PROSTATE CANCER
     Dosage: 25 MG, 1X/DAY
     Route: 048
     Dates: start: 20090806, end: 20091228
  4. PREDNISONE [Suspect]
     Indication: PROSTATE CANCER
     Dosage: 10 MG, TWICE DAILY
     Route: 048
     Dates: start: 20090806, end: 20091228
  5. VALSARTAN [Concomitant]
     Dosage: 160 MG, 1X/DAY
     Route: 048
  6. ATORVASTATIN [Concomitant]
     Dosage: 10 MG, 1X/DAY
     Route: 048
  7. AMLODIPINE [Concomitant]
     Dosage: 5 MG, 1X/DAY
     Route: 048

REACTIONS (1)
  - ANAL ABSCESS [None]
